FAERS Safety Report 20456333 (Version 4)
Quarter: 2023Q4

REPORT INFORMATION
  Report Type: Report from Study
  Country: US (occurrence: US)
  Receive Date: 20220210
  Receipt Date: 20231108
  Transmission Date: 20240110
  Serious: Yes (Other)
  Sender: FDA-Public Use
  Company Number: US-TAKEDA-2022TUS007180

PATIENT
  Age: 79 Year
  Sex: Female

DRUGS (4)
  1. IXAZOMIB [Suspect]
     Active Substance: IXAZOMIB
     Indication: Plasma cell myeloma
     Dosage: 4 MILLIGRAM
     Route: 048
     Dates: start: 20200302
  2. IXAZOMIB [Suspect]
     Active Substance: IXAZOMIB
     Dosage: 3 MILLIGRAM
     Route: 048
     Dates: start: 202104
  3. IXAZOMIB [Suspect]
     Active Substance: IXAZOMIB
     Dosage: 3 MILLIGRAM
     Route: 048
  4. POMALYST [Concomitant]
     Active Substance: POMALIDOMIDE
     Dosage: UNK
     Route: 065

REACTIONS (5)
  - Neuropathy peripheral [Unknown]
  - Blood pressure decreased [Unknown]
  - Red blood cell count decreased [Unknown]
  - Tooth infection [Recovered/Resolved]
  - Constipation [Recovering/Resolving]

NARRATIVE: CASE EVENT DATE: 20211001
